FAERS Safety Report 11796898 (Version 3)
Quarter: 2016Q3

REPORT INFORMATION
  Report Type: Report from Study
  Country: JP (occurrence: JP)
  Receive Date: 20151203
  Receipt Date: 20160729
  Transmission Date: 20161109
  Serious: Yes (Death, Hospitalization, Other)
  Sender: FDA-Public Use
  Company Number: JP-ACTELION-A-CH2015-128099

PATIENT
  Age: 77 Year
  Sex: Male

DRUGS (11)
  1. OPSUMIT [Suspect]
     Active Substance: MACITENTAN
     Dosage: 10 MG, OD
     Route: 048
     Dates: start: 20150702, end: 20160102
  2. NORVASC [Suspect]
     Active Substance: AMLODIPINE BESYLATE
     Indication: HYPERTENSION
     Dosage: 5 MG, OD
     Route: 048
     Dates: start: 20130111, end: 20150626
  3. OXYGEN. [Concomitant]
     Active Substance: OXYGEN
  4. RIOCIGUAT [Concomitant]
     Active Substance: RIOCIGUAT
  5. DIART [Concomitant]
     Active Substance: AZOSEMIDE
     Dosage: 30 MG, OD
     Route: 048
     Dates: start: 20130625, end: 20150707
  6. SILDENAFIL. [Concomitant]
     Active Substance: SILDENAFIL
  7. CANDESARTAN [Suspect]
     Active Substance: CANDESARTAN
     Indication: HYPERTENSION
     Dosage: 4 MG, OD
     Route: 048
     Dates: end: 20150626
  8. NORVASC [Suspect]
     Active Substance: AMLODIPINE BESYLATE
     Dosage: 2.5 MG, OD
     Route: 048
     Dates: start: 20150627, end: 20150701
  9. OPSUMIT [Suspect]
     Active Substance: MACITENTAN
     Indication: PULMONARY ARTERIAL HYPERTENSION
     Dosage: 10 MG, OD
     Route: 048
     Dates: start: 20150625, end: 20150626
  10. CANDESARTAN [Suspect]
     Active Substance: CANDESARTAN
     Dosage: 8 MG, OD
     Route: 048
     Dates: start: 20111125
  11. CANDESARTAN [Suspect]
     Active Substance: CANDESARTAN
     Dosage: 8 MG, OD
     Route: 048
     Dates: start: 20150627, end: 20150701

REACTIONS (11)
  - Concomitant disease progression [Recovered/Resolved]
  - Hypoxia [Recovering/Resolving]
  - Blood creatinine increased [Recovered/Resolved]
  - Cardiac output decreased [Recovered/Resolved]
  - Condition aggravated [Unknown]
  - Death [Fatal]
  - Blood urea increased [Recovered/Resolved]
  - Pulmonary arterial hypertension [Unknown]
  - Blood pressure decreased [Recovered/Resolved]
  - Fall [Unknown]
  - Chronic kidney disease [Recovered/Resolved]

NARRATIVE: CASE EVENT DATE: 20150625
